FAERS Safety Report 26219422 (Version 1)
Quarter: 2025Q4

REPORT INFORMATION
  Report Type: Spontaneous
  Country: CN (occurrence: CN)
  Receive Date: 20251231
  Receipt Date: 20251231
  Transmission Date: 20260118
  Serious: Yes (Other)
  Sender: ABBVIE
  Company Number: CN-ABBVIE-6610106

PATIENT
  Age: 57 Year
  Sex: Female
  Weight: 46 kg

DRUGS (2)
  1. VENETOCLAX [Suspect]
     Active Substance: VENETOCLAX
     Indication: Acute myeloid leukaemia
     Route: 048
     Dates: start: 20251209, end: 20251220
  2. AZACITIDINE [Concomitant]
     Active Substance: AZACITIDINE
     Indication: Acute myeloid leukaemia
     Route: 058
     Dates: start: 20251210, end: 20251214

REACTIONS (9)
  - Myelosuppression [Recovering/Resolving]
  - Rhinorrhoea [Recovering/Resolving]
  - White blood cell count decreased [Recovering/Resolving]
  - Nasal congestion [Recovering/Resolving]
  - Abdominal distension [Recovering/Resolving]
  - Decreased appetite [Recovering/Resolving]
  - Body temperature decreased [Unknown]
  - Abdominal pain [Recovering/Resolving]
  - Nasal discharge discolouration [Unknown]

NARRATIVE: CASE EVENT DATE: 20251215
